FAERS Safety Report 23273462 (Version 1)
Quarter: 2023Q4

REPORT INFORMATION
  Report Type: Spontaneous
  Country: ES (occurrence: ES)
  Receive Date: 20231207
  Receipt Date: 20231207
  Transmission Date: 20240109
  Serious: Yes (Other)
  Sender: FDA-Public Use
  Company Number: ES-JNJFOC-20231178744

PATIENT
  Age: 60 Year
  Weight: 45 kg

DRUGS (3)
  1. DEXAMETHASONE [Suspect]
     Active Substance: DEXAMETHASONE
     Indication: Plasma cell myeloma
     Route: 065
     Dates: start: 20201201
  2. DARZALEX [Suspect]
     Active Substance: DARATUMUMAB
     Indication: Plasma cell myeloma
     Dosage: MAINTENANCE DARATUMUMAB WAS CONTINUED; 15TH CYCLE
     Route: 065
     Dates: start: 20201201, end: 20220413
  3. VELCADE [Suspect]
     Active Substance: BORTEZOMIB
     Indication: Plasma cell myeloma
     Dosage: BORTEZOMIB WAS SUSPENDED AFTER THE 3RD CYCLE
     Route: 065
     Dates: start: 20201201

REACTIONS (1)
  - Neuropathy peripheral [Unknown]
